FAERS Safety Report 5690565-4 (Version None)
Quarter: 2008Q2

REPORT INFORMATION
  Report Type: 
  Country: None (occurrence: None)
  Receive Date: 20080401
  Receipt Date: 19830926
  Transmission Date: 20081010
  Serious: Yes (Death, Congenital Anomaly, Other)
  Sender: FDA-Public Use
  Company Number: US-ROCHE-830200040001

PATIENT
  Sex: Female
  Weight: 1.5 kg

DRUGS (1)
  1. ACCUTANE [Suspect]
     Dates: start: 19830101, end: 19830315

REACTIONS (6)
  - BRONCHOPLEURAL FISTULA [None]
  - CONGENITAL CARDIOVASCULAR ANOMALY [None]
  - CONGENITAL CENTRAL NERVOUS SYSTEM ANOMALY [None]
  - DYSMORPHISM [None]
  - EAR MALFORMATION [None]
  - PREMATURE BABY [None]
